FAERS Safety Report 18087064 (Version 1)
Quarter: 2020Q3

REPORT INFORMATION
  Report Type: Spontaneous
  Country: GB (occurrence: GB)
  Receive Date: 20200729
  Receipt Date: 20200729
  Transmission Date: 20201103
  Serious: Yes (Other)
  Sender: FDA-Public Use
  Company Number: GB-PFIZER INC-2020285058

PATIENT
  Age: 35 Year
  Sex: Male
  Weight: 68 kg

DRUGS (9)
  1. PARACETAMOL [Concomitant]
     Active Substance: ACETAMINOPHEN
     Dosage: 2 TABLET
     Dates: start: 20200528, end: 20200528
  2. VITAMIN B [Concomitant]
     Active Substance: VITAMIN B
     Dosage: 6 DF, 1X/DAY
     Dates: start: 20200525, end: 20200529
  3. CETIRIZINE [Concomitant]
     Active Substance: CETIRIZINE HYDROCHLORIDE
     Dosage: 1 DF
     Dates: start: 20200528, end: 20200528
  4. THIAMINE. [Concomitant]
     Active Substance: THIAMINE
     Dosage: 2 DF, DAILY
     Dates: start: 20200525, end: 20200529
  5. IBUPROFEN. [Suspect]
     Active Substance: IBUPROFEN
     Dosage: 200 MG
     Dates: start: 20200707
  6. COCODAMOL [Concomitant]
     Active Substance: ACETAMINOPHEN\CODEINE PHOSPHATE
     Dosage: 2 CAPSULE
     Dates: start: 20200518, end: 20200523
  7. DIAZEPAM. [Concomitant]
     Active Substance: DIAZEPAM
     Dosage: 1 RECTAL TUBE
     Route: 054
     Dates: start: 20200518, end: 20200519
  8. METHADONE [Concomitant]
     Active Substance: METHADONE HYDROCHLORIDE
     Dosage: VARIABLE DOSE
     Dates: start: 20200521, end: 20200529
  9. CHLORDIAZEPOXIDE. [Concomitant]
     Active Substance: CHLORDIAZEPOXIDE
     Dosage: VARIABLE DOSE
     Dates: start: 20200518, end: 20200527

REACTIONS (2)
  - Drug hypersensitivity [Unknown]
  - Gastric ulcer [Recovered/Resolved]

NARRATIVE: CASE EVENT DATE: 202007
